FAERS Safety Report 15623306 (Version 1)
Quarter: 2018Q4

REPORT INFORMATION
  Report Type: Report from Study
  Country: US (occurrence: US)
  Receive Date: 20181115
  Receipt Date: 20181115
  Transmission Date: 20190205
  Serious: Yes (Hospitalization)
  Sender: FDA-Public Use
  Company Number: US-BAUSCH-BL-2018-031574

PATIENT
  Sex: Female

DRUGS (1)
  1. XIFAXAN [Suspect]
     Active Substance: RIFAXIMIN
     Indication: PRODUCT USED FOR UNKNOWN INDICATION
     Route: 048

REACTIONS (9)
  - Pleural effusion [Unknown]
  - Hypomagnesaemia [Unknown]
  - Blood potassium decreased [Unknown]
  - Dyspnoea [Unknown]
  - Haematochezia [Unknown]
  - Ascites [Unknown]
  - Anaemia [Unknown]
  - Diverticulum intestinal [Unknown]
  - Inability to afford medication [Unknown]
